FAERS Safety Report 9419248 (Version 1)
Quarter: 2013Q3

REPORT INFORMATION
  Report Type: Spontaneous
  Country: US (occurrence: US)
  Receive Date: 20130725
  Receipt Date: 20130725
  Transmission Date: 20140515
  Serious: No
  Sender: FDA-Public Use
  Company Number: US-GLAXOSMITHKLINE-A0988332A

PATIENT
  Age: 49 Year
  Sex: Male

DRUGS (6)
  1. LAMICTAL [Suspect]
     Indication: CONVULSION
     Dosage: 300MG PER DAY
     Route: 048
  2. LISINOPRIL [Concomitant]
  3. CITALOPRAM [Concomitant]
  4. ANDROGEL [Concomitant]
     Route: 061
  5. TEMODAR [Concomitant]
  6. VASTIN [Concomitant]

REACTIONS (1)
  - Diplopia [Unknown]
